FAERS Safety Report 5038867-9 (Version None)
Quarter: 2006Q2

REPORT INFORMATION
  Report Type: 
  Country: None (occurrence: None)
  Receive Date: 20060626
  Receipt Date: 20060626
  Transmission Date: 20061013
  Serious: No
  Sender: FDA-Public Use
  Company Number: None

PATIENT
  Age: 67 Year
  Sex: Male
  Weight: 78.5 kg

DRUGS (2)
  1. LENALIDOMIDE 10 MG -CELGENE [Suspect]
     Indication: MULTIPLE MYELOMA
     Dosage: 25 MG BU MOUTH ONCE DAILY X 21 DAYS ON A 28-DAY CYCLE
     Dates: start: 20060501
  2. LENALIDOMIDE 5 MG -CELGENE [Suspect]
     Dates: start: 20060619

REACTIONS (2)
  - NEUTROPENIA [None]
  - THROMBOCYTOPENIA [None]
